FAERS Safety Report 9959225 (Version 2)
Quarter: 2014Q1

REPORT INFORMATION
  Report Type: Report from Study
  Country: US (occurrence: US)
  Receive Date: 20140305
  Receipt Date: 20140305
  Transmission Date: 20141002
  Serious: No
  Sender: FDA-Public Use
  Company Number: US-ABBVIE-13P-163-1093629-00

PATIENT
  Age: 26 Year
  Sex: Female
  Weight: 68.1 kg

DRUGS (5)
  1. HUMIRA [Suspect]
     Indication: PSORIASIS
     Route: 058
     Dates: start: 20130517
  2. HUMIRA [Suspect]
     Indication: PSORIASIS
  3. TRIAMCINOLONE [Concomitant]
     Indication: PSORIASIS
  4. CLARITIN [Concomitant]
     Indication: HYPERSENSITIVITY
  5. ZIRTEC [Concomitant]
     Indication: HYPERSENSITIVITY

REACTIONS (2)
  - Menorrhagia [Recovered/Resolved]
  - Menstrual disorder [Unknown]
